FAERS Safety Report 11553073 (Version 1)
Quarter: 2015Q3

REPORT INFORMATION
  Report Type: Spontaneous
  Country: CN (occurrence: CN)
  Receive Date: 20150925
  Receipt Date: 20150925
  Transmission Date: 20151125
  Serious: Yes (Death, Hospitalization)
  Sender: FDA-Public Use
  Company Number: CN-009507513-1509CHN012113

PATIENT
  Age: 36 Year
  Sex: Male

DRUGS (2)
  1. TEMOZOLOMIDE. [Suspect]
     Active Substance: TEMOZOLOMIDE
     Indication: CHEMOTHERAPY
     Dosage: 75MG/M2 PER DAY
     Route: 048
  2. TEMOZOLOMIDE. [Suspect]
     Active Substance: TEMOZOLOMIDE
     Dosage: 3 CYCLES:150-200MG/M2 FOR 5 DAYS DURING EACH 28-DAY CYCLE
     Route: 048

REACTIONS (2)
  - Drug ineffective [Fatal]
  - General physical health deterioration [Fatal]
